FAERS Safety Report 26125045 (Version 1)
Quarter: 2025Q4

REPORT INFORMATION
  Report Type: Report from Study
  Country: EU (occurrence: EU)
  Receive Date: 20251205
  Receipt Date: 20251205
  Transmission Date: 20260118
  Serious: Yes (Other)
  Sender: EMD SERONO INC
  Company Number: EU-Merck Healthcare KGaA-2025061010

PATIENT
  Age: 11 Year
  Sex: Male
  Weight: 24 kg

DRUGS (2)
  1. SAIZEN [Suspect]
     Active Substance: SOMATROPIN
     Indication: Growth hormone deficiency
     Dates: start: 20200407
  2. SAIZEN [Suspect]
     Active Substance: SOMATROPIN
     Dosage: THE MOST RECENT ADMINISTRATION PRIOR TO EVENTS WAS ON 10-FEB-2025

REACTIONS (2)
  - Optic disc oedema [Recovered/Resolved]
  - Refraction disorder [Recovered/Resolved]

NARRATIVE: CASE EVENT DATE: 20250211
